FAERS Safety Report 12674233 (Version 4)
Quarter: 2017Q2

REPORT INFORMATION
  Report Type: Spontaneous
  Country: JP (occurrence: JP)
  Receive Date: 20160822
  Receipt Date: 20170616
  Transmission Date: 20170830
  Serious: Yes (Hospitalization, Other)
  Sender: FDA-Public Use
  Company Number: JP-PFIZER INC-2016319428

PATIENT
  Age: 67 Year
  Sex: Male

DRUGS (2)
  1. CELECOX [Suspect]
     Active Substance: CELECOXIB
     Indication: RHEUMATOID ARTHRITIS
     Dosage: 100 MG, 2X/DAY
     Route: 048
     Dates: start: 20121009, end: 20130819
  2. RHEUMATREX [Suspect]
     Active Substance: METHOTREXATE SODIUM
     Indication: RHEUMATOID ARTHRITIS
     Dosage: 10 MG, WEEKLY
     Route: 048
     Dates: start: 20121018, end: 20130925

REACTIONS (1)
  - Interstitial lung disease [Recovered/Resolved]

NARRATIVE: CASE EVENT DATE: 20130901
